FAERS Safety Report 25968752 (Version 1)
Quarter: 2025Q4

REPORT INFORMATION
  Report Type: Spontaneous
  Country: RU (occurrence: RU)
  Receive Date: 20251028
  Receipt Date: 20251028
  Transmission Date: 20260117
  Serious: Yes (Hospitalization)
  Sender: PFIZER
  Company Number: RU-PFIZER INC-PV202500125684

PATIENT
  Age: 55 Year
  Sex: Female

DRUGS (1)
  1. LORLATINIB [Suspect]
     Active Substance: LORLATINIB
     Indication: Non-small cell lung cancer metastatic
     Dosage: 100 MG, 1X/DAY
     Route: 048
     Dates: start: 202410, end: 202510

REACTIONS (3)
  - Paraesthesia [Unknown]
  - Raynaud^s phenomenon [Unknown]
  - Dry gangrene [Not Recovered/Not Resolved]

NARRATIVE: CASE EVENT DATE: 20250101
